FAERS Safety Report 6755494-3 (Version None)
Quarter: 2010Q2

REPORT INFORMATION
  Report Type: 
  Country: None (occurrence: None)
  Receive Date: 20100604
  Receipt Date: 20100525
  Transmission Date: 20101027
  Serious: Yes (Hospitalization)
  Sender: FDA-Public Use
  Company Number: JP-SHIRE-SPV1-2010-01008

PATIENT

DRUGS (7)
  1. LANTHANUM CARBONATE [Suspect]
     Indication: HYPERPHOSPHATAEMIA
     Route: 048
     Dates: start: 20090622
  2. CALCIUM CARBONATE [Concomitant]
     Indication: HYPERPHOSPHATAEMIA
     Dosage: 4500 MG, UNK
     Route: 048
     Dates: start: 20080307
  3. FULSTAN [Concomitant]
     Dosage: .15 UG, UNK
     Route: 048
     Dates: start: 20080703
  4. ZYLORIC [Concomitant]
     Dosage: 100 MG, UNK
     Route: 048
  5. PARIET [Concomitant]
     Dosage: 10 MG, UNK
     Route: 048
     Dates: start: 20091117
  6. SHAKUYAKUKANZOUTOU [Concomitant]
     Dosage: 2.5 G, UNK
     Route: 048
  7. RISUMIC [Concomitant]
     Dosage: 10 MG, UNK
     Route: 048

REACTIONS (1)
  - GASTROENTERITIS [None]
